FAERS Safety Report 14494337 (Version 2)
Quarter: 2018Q1

REPORT INFORMATION
  Report Type: Report from Study
  Country: US (occurrence: US)
  Receive Date: 20180206
  Receipt Date: 20180315
  Transmission Date: 20180509
  Serious: Yes (Hospitalization)
  Sender: FDA-Public Use
  Company Number: US-PFIZER INC-2017349463

PATIENT
  Age: 84 Year
  Sex: Female

DRUGS (2)
  1. IBRANCE [Suspect]
     Active Substance: PALBOCICLIB
     Dosage: 125 MG, CYCLIC (DAILY; 3 WEEKS ON/1 WEEK OFF)
     Route: 048
     Dates: start: 20170824
  2. IBRANCE [Suspect]
     Active Substance: PALBOCICLIB
     Indication: BREAST CANCER
     Dosage: 125 MG, CYCLIC (DAILY; 3 WEEKS ON/1 WEEK OFF)
     Route: 048
     Dates: start: 20170803, end: 20170823

REACTIONS (14)
  - Fatigue [Recovering/Resolving]
  - Diarrhoea [Recovered/Resolved]
  - Epistaxis [Not Recovered/Not Resolved]
  - Nervousness [Unknown]
  - Condition aggravated [Recovering/Resolving]
  - Constipation [Recovered/Resolved]
  - Cough [Unknown]
  - Asthenia [Unknown]
  - Dehydration [Unknown]
  - Joint swelling [Unknown]
  - Renal impairment [Unknown]
  - Drug dose omission [Unknown]
  - Musculoskeletal pain [Unknown]
  - Lymphoedema [Not Recovered/Not Resolved]

NARRATIVE: CASE EVENT DATE: 2017
